FAERS Safety Report 5285966-2 (Version None)
Quarter: 2007Q1

REPORT INFORMATION
  Report Type: 
  Country: None (occurrence: None)
  Receive Date: 20070328
  Receipt Date: 20070321
  Transmission Date: 20070707
  Serious: Yes (Other)
  Sender: FDA-Public Use
  Company Number: S07-USA-01263-01

PATIENT
  Sex: Female

DRUGS (4)
  1. NAMENDA [Suspect]
     Indication: DEMENTIA ALZHEIMER'S TYPE
     Dates: start: 20050101
  2. LYRICA [Suspect]
     Indication: PAIN
  3. LYRICA [Suspect]
     Indication: PAIN
  4. ARICEPT [Concomitant]

REACTIONS (3)
  - CONDITION AGGRAVATED [None]
  - DEMENTIA ALZHEIMER'S TYPE [None]
  - PAIN [None]
